FAERS Safety Report 24845268 (Version 3)
Quarter: 2025Q1

REPORT INFORMATION
  Report Type: Report from Study
  Country: JP (occurrence: JP)
  Receive Date: 20250115
  Receipt Date: 20250221
  Transmission Date: 20250409
  Serious: Yes (Death)
  Sender: AKEBIA THERAPEUTICS
  Company Number: JP-MTPC-MTPC2023-0011675

PATIENT
  Age: 75 Year
  Sex: Female
  Weight: 56.3 kg

DRUGS (18)
  1. VADADUSTAT [Suspect]
     Active Substance: VADADUSTAT
     Indication: Nephrogenic anaemia
     Dosage: 300 MILLIGRAM, QD
     Route: 048
     Dates: start: 20221004, end: 20221207
  2. VADADUSTAT [Suspect]
     Active Substance: VADADUSTAT
     Dosage: 450 MILLIGRAM, QD
     Route: 048
     Dates: start: 20221208, end: 20221215
  3. DARBEPOETIN ALFA [Concomitant]
     Active Substance: DARBEPOETIN ALFA
     Indication: Nephrogenic anaemia
     Dosage: 30 MICROGRAM, 1/WEEK
     Route: 042
     Dates: start: 20220823, end: 20220927
  4. SODIUM FERROUS CITRATE [Concomitant]
     Active Substance: SODIUM FERROUS CITRATE
     Indication: Product used for unknown indication
     Dosage: 50 MILLIGRAM, QD
     Route: 048
  5. OLMESARTAN [Concomitant]
     Active Substance: OLMESARTAN
     Indication: Product used for unknown indication
     Dosage: 20 MILLIGRAM, QD
     Route: 048
  6. LEVOTHYROXINE SODIUM [Concomitant]
     Active Substance: LEVOTHYROXINE SODIUM
     Indication: Illness
     Dosage: 75 MICROGRAM, QD
     Route: 048
  7. CLOPIDOGREL BISULFATE [Concomitant]
     Active Substance: CLOPIDOGREL BISULFATE
     Indication: Illness
     Dosage: 75 MILLIGRAM, QD
     Route: 048
  8. VONOPRAZAN FUMARATE [Concomitant]
     Active Substance: VONOPRAZAN FUMARATE
     Indication: Illness
     Dosage: 10 MILLIGRAM, QD
     Route: 048
  9. ALFACALCIDOL [Concomitant]
     Active Substance: ALFACALCIDOL
     Indication: Illness
     Dosage: 0.5 MICROGRAM, QD
     Route: 048
  10. VILDAGLIPTIN [Concomitant]
     Active Substance: VILDAGLIPTIN
     Indication: Illness
     Dosage: 50 MILLIGRAM, QD
     Route: 048
  11. FEXOFENADINE HYDROCHLORIDE [Concomitant]
     Active Substance: FEXOFENADINE HYDROCHLORIDE
     Indication: Illness
     Dosage: 60 MILLIGRAM, QD
     Route: 048
  12. PRAVASTATIN SODIUM [Concomitant]
     Active Substance: PRAVASTATIN SODIUM
     Indication: Illness
     Dosage: 10 MILLIGRAM, QD
     Route: 048
  13. CILOSTAZOL [Concomitant]
     Active Substance: CILOSTAZOL
     Indication: Illness
     Dosage: 200 MILLIGRAM, QD
     Route: 048
  14. NICORANDIL [Concomitant]
     Active Substance: NICORANDIL
     Indication: Illness
     Dosage: 10 MILLIGRAM, QD
     Route: 048
  15. MOSAPRIDE CITRATE [Concomitant]
     Active Substance: MOSAPRIDE CITRATE
     Indication: Illness
     Dosage: 10 MILLIGRAM, QD
     Route: 048
  16. ZOLPIDEM TARTRATE [Concomitant]
     Active Substance: ZOLPIDEM TARTRATE
     Indication: Illness
     Dosage: 5 MILLIGRAM, QD
     Route: 048
  17. AMEZINIUM METILSULFATE [Concomitant]
     Active Substance: AMEZINIUM METILSULFATE
     Indication: Illness
     Dosage: 10 MILLIGRAM, QD
     Route: 048
  18. DROXIDOPA [Concomitant]
     Active Substance: DROXIDOPA
     Indication: Illness
     Dosage: 200 MILLIGRAM, QD
     Route: 048

REACTIONS (2)
  - Death [Fatal]
  - Nausea [Recovering/Resolving]

NARRATIVE: CASE EVENT DATE: 20221214
